FAERS Safety Report 6522560-7 (Version None)
Quarter: 2009Q4

REPORT INFORMATION
  Report Type: 
  Country: None (occurrence: None)
  Receive Date: 20091230
  Receipt Date: 20091218
  Transmission Date: 20100525
  Serious: Yes (Hospitalization, Other)
  Sender: FDA-Public Use
  Company Number: US-AMGEN-QUU381553

PATIENT
  Sex: Female

DRUGS (1)
  1. ENBREL [Suspect]
     Indication: RHEUMATOID ARTHRITIS
     Route: 058
     Dates: start: 19990801

REACTIONS (10)
  - ALOPECIA [None]
  - BACK PAIN [None]
  - BLOOD PRESSURE INCREASED [None]
  - NAIL DISCOLOURATION [None]
  - NAIL DISORDER [None]
  - ONYCHOMYCOSIS [None]
  - POVERTY OF THOUGHT CONTENT [None]
  - RENAL DISORDER [None]
  - SPINAL DISORDER [None]
  - URINARY TRACT INFECTION [None]
